FAERS Safety Report 9694471 (Version 4)
Quarter: 2014Q4

REPORT INFORMATION
  Report Type: Report from Study
  Country: DE (occurrence: DE)
  Receive Date: 20131118
  Receipt Date: 20141010
  Transmission Date: 20150529
  Serious: Yes (Death, Hospitalization, Other)
  Sender: FDA-Public Use
  Company Number: DE-ABBVIE-13P-062-1054253-00

PATIENT
  Age: 77 Year
  Sex: Male

DRUGS (7)
  1. ASPIRIN. [Concomitant]
     Active Substance: ASPIRIN
     Indication: PRODUCT USED FOR UNKNOWN INDICATION
     Route: 065
  2. DIURETICS [Concomitant]
     Active Substance: UNSPECIFIED INGREDIENT
     Indication: PRODUCT USED FOR UNKNOWN INDICATION
     Route: 065
  3. LEUPRORELIN [Suspect]
     Active Substance: LEUPROLIDE ACETATE
     Indication: PROSTATE CANCER
     Route: 058
     Dates: start: 20120717, end: 20140430
  4. CALCIUM CHANNEL BLOCKERS [Concomitant]
     Active Substance: UNSPECIFIED INGREDIENT
     Indication: PRODUCT USED FOR UNKNOWN INDICATION
     Route: 065
  5. ACE INHIBITOR/AT1 ANTAGONIST [Concomitant]
     Indication: PRODUCT USED FOR UNKNOWN INDICATION
  6. BETA BLOCKING AGENTS [Concomitant]
     Active Substance: UNSPECIFIED INGREDIENT
     Indication: PRODUCT USED FOR UNKNOWN INDICATION
     Route: 065
  7. ANTIANDROGENS [Concomitant]
     Active Substance: UNSPECIFIED INGREDIENT
     Indication: PROSTATE CANCER
     Route: 065

REACTIONS (9)
  - Blood creatinine increased [Fatal]
  - Bronchial carcinoma [Fatal]
  - Cor pulmonale [Fatal]
  - Infective exacerbation of chronic obstructive airways disease [Fatal]
  - Respiratory failure [Fatal]
  - Death [Fatal]
  - Chronic obstructive pulmonary disease [Fatal]
  - Lymphadenopathy mediastinal [Fatal]
  - Haemoglobin decreased [Fatal]

NARRATIVE: CASE EVENT DATE: 20130104
